FAERS Safety Report 5340305-3 (Version None)
Quarter: 2007Q2

REPORT INFORMATION
  Report Type: 
  Country: None (occurrence: None)
  Receive Date: 20070531
  Receipt Date: 20070521
  Transmission Date: 20071010
  Serious: Yes (Death, Hospitalization)
  Sender: FDA-Public Use
  Company Number: IT-ROCHE-498473

PATIENT
  Age: 46 Year
  Sex: Female

DRUGS (2)
  1. KETOROLAC TROMETHAMINE [Suspect]
     Route: 030
     Dates: start: 20040901
  2. DICLOFENAC SODIUM [Suspect]
     Indication: ARTHRITIS
     Route: 030
     Dates: start: 20040901

REACTIONS (1)
  - NECROTISING FASCIITIS [None]
